FAERS Safety Report 21175539 (Version 1)
Quarter: 2022Q3

REPORT INFORMATION
  Report Type: Spontaneous
  Country: ES (occurrence: ES)
  Receive Date: 20220805
  Receipt Date: 20220805
  Transmission Date: 20221026
  Serious: Yes (Hospitalization)
  Sender: FDA-Public Use
  Company Number: None

PATIENT
  Age: 70 Year
  Sex: Female

DRUGS (1)
  1. OSELTAMIVIR [Suspect]
     Active Substance: OSELTAMIVIR
     Indication: Product used for unknown indication
     Dosage: OSELTAMIVIR (2885A)
     Dates: start: 20220330

REACTIONS (1)
  - Psychotic disorder [Recovered/Resolved]

NARRATIVE: CASE EVENT DATE: 20220403
